FAERS Safety Report 4427517-8 (Version None)
Quarter: 2004Q3

REPORT INFORMATION
  Report Type: 
  Country: None (occurrence: None)
  Receive Date: 20040817
  Receipt Date: 20020319
  Transmission Date: 20050211
  Serious: Yes (Disabling, Other)
  Sender: FDA-Public Use
  Company Number: US-MERCK-0203USA02027

PATIENT
  Age: 52 Year
  Sex: Female
  Weight: 105 kg

DRUGS (5)
  1. PREMARIN [Concomitant]
     Route: 065
     Dates: start: 20000101, end: 20030101
  2. MOTRIN [Concomitant]
     Route: 065
     Dates: start: 20000101
  3. PROGESTERONE [Concomitant]
     Route: 065
     Dates: start: 20000101, end: 20030101
  4. VIOXX [Suspect]
     Indication: MONARTHRITIS
     Route: 048
     Dates: start: 20001108, end: 20001201
  5. VIOXX [Suspect]
     Indication: OSTEOARTHRITIS
     Route: 048
     Dates: start: 20001108, end: 20001201

REACTIONS (20)
  - ANXIETY [None]
  - APHASIA [None]
  - BLINDNESS UNILATERAL [None]
  - CEREBROVASCULAR ACCIDENT [None]
  - EMOTIONAL DISTRESS [None]
  - EYE PAIN [None]
  - HEADACHE [None]
  - HYPOAESTHESIA [None]
  - INJURY [None]
  - LOCALISED OSTEOARTHRITIS [None]
  - MEDICATION ERROR [None]
  - OPTIC ATROPHY [None]
  - OPTIC DISC DISORDER [None]
  - OPTIC ISCHAEMIC NEUROPATHY [None]
  - OPTIC NEURITIS [None]
  - SPINAL OSTEOARTHRITIS [None]
  - SPONDYLITIS [None]
  - URINARY TRACT INFECTION [None]
  - VISION BLURRED [None]
  - VISUAL DISTURBANCE [None]
